FAERS Safety Report 4861920-7 (Version None)
Quarter: 2005Q4

REPORT INFORMATION
  Report Type: 
  Country: None (occurrence: None)
  Receive Date: 20051130
  Receipt Date: 20051019
  Transmission Date: 20060501
  Serious: No
  Sender: FDA-Public Use
  Company Number: MPS1-10453

PATIENT
  Age: 8 Year
  Sex: Female
  Weight: 23.2 kg

DRUGS (2)
  1. ALDURAZYME [Suspect]
     Indication: MUCOPOLYSACCHARIDOSIS IH/S
     Dosage: 14.5 MG QWK IV
     Route: 042
     Dates: start: 20030624
  2. GEODON [Concomitant]

REACTIONS (1)
  - POST PROCEDURAL COMPLICATION [None]
